FAERS Safety Report 16781973 (Version 1)
Quarter: 2019Q3

REPORT INFORMATION
  Report Type: Spontaneous
  Country: US (occurrence: US)
  Receive Date: 20190906
  Receipt Date: 20190906
  Transmission Date: 20191005
  Serious: Yes (Other)
  Sender: FDA-Public Use
  Company Number: US-PFIZER INC-2019381189

PATIENT
  Age: 49 Year
  Sex: Female
  Weight: 92.53 kg

DRUGS (2)
  1. OXYGEN. [Concomitant]
     Active Substance: OXYGEN
     Indication: HYPOXIA
     Dosage: 2 TO 3 LITERS PER MINUTE
  2. CHANTIX [Suspect]
     Active Substance: VARENICLINE TARTRATE
     Indication: SMOKING CESSATION THERAPY
     Dosage: 1 MG, 2X/DAY
     Dates: start: 20190308, end: 2019

REACTIONS (7)
  - Weight decreased [Unknown]
  - Malaise [Unknown]
  - Aortic aneurysm [Unknown]
  - Haemoglobin increased [Unknown]
  - Hypoacusis [Unknown]
  - Fall [Unknown]
  - Red blood cell count increased [Unknown]
